FAERS Safety Report 14579414 (Version 1)
Quarter: 2018Q1

REPORT INFORMATION
  Report Type: Report from Study
  Country: US (occurrence: US)
  Receive Date: 20180227
  Receipt Date: 20180227
  Transmission Date: 20180509
  Serious: Yes (Death, Hospitalization)
  Sender: FDA-Public Use
  Company Number: US-ACTELION-A-NJ2017-156664

PATIENT
  Age: 63 Year
  Sex: Male

DRUGS (2)
  1. UPTRAVI [Suspect]
     Active Substance: SELEXIPAG
     Indication: PULMONARY ARTERIAL HYPERTENSION
     Dosage: 1600 MCG, BID
     Route: 048
     Dates: start: 20170405, end: 20180204
  2. UPTRAVI [Suspect]
     Active Substance: SELEXIPAG
     Dosage: UNK
     Route: 048
     Dates: start: 20170201

REACTIONS (13)
  - Death [Fatal]
  - Headache [Unknown]
  - Pain in jaw [Unknown]
  - Flushing [Unknown]
  - Abdominal discomfort [Unknown]
  - Hypotension [Unknown]
  - Vomiting [Unknown]
  - Diarrhoea [Unknown]
  - Fluid retention [Unknown]
  - Myalgia [Unknown]
  - Tooth abscess [Unknown]
  - Ascites [Unknown]
  - Nausea [Unknown]

NARRATIVE: CASE EVENT DATE: 20170619
